FAERS Safety Report 19025147 (Version 1)
Quarter: 2021Q1

REPORT INFORMATION
  Report Type: Spontaneous
  Country: US (occurrence: US)
  Receive Date: 20210316
  Receipt Date: 20210316
  Transmission Date: 20210420
  Serious: No
  Sender: FDA-Public Use
  Company Number: None

PATIENT
  Age: 77 Year
  Sex: Male
  Weight: 70.22 kg

DRUGS (1)
  1. LITHIUM (LITHIUM CARBONATE 150MG CAP) [Suspect]
     Active Substance: LITHIUM CARBONATE
     Route: 048
     Dates: start: 20180222, end: 20190411

REACTIONS (2)
  - Diabetes insipidus [None]
  - Hyperglycaemia [None]

NARRATIVE: CASE EVENT DATE: 20190512
